FAERS Safety Report 11307493 (Version 1)
Quarter: 2015Q3

REPORT INFORMATION
  Report Type: Spontaneous
  Country: JP (occurrence: JP)
  Receive Date: 20150723
  Receipt Date: 20150723
  Transmission Date: 20151125
  Serious: Yes (Hospitalization)
  Sender: FDA-Public Use
  Company Number: JP-MYLANLABS-2015M1023554

PATIENT

DRUGS (2)
  1. TACROLIMUS CAPSULES 0.5MG [PFIZER] [Suspect]
     Active Substance: TACROLIMUS
     Indication: MYASTHENIA GRAVIS
     Route: 048
  2. PREDNISOLONE TABLETS 1^HOEI^ [Suspect]
     Active Substance: PREDNISOLONE
     Indication: MYASTHENIA GRAVIS
     Route: 048

REACTIONS (3)
  - Diarrhoea [Recovering/Resolving]
  - Immunosuppressant drug level increased [Recovering/Resolving]
  - Cytomegalovirus enterocolitis [Recovering/Resolving]
